FAERS Safety Report 22041103 (Version 2)
Quarter: 2023Q1

REPORT INFORMATION
  Report Type: Spontaneous
  Country: PT (occurrence: None)
  Receive Date: 20230227
  Receipt Date: 20230303
  Transmission Date: 20230417
  Serious: Yes (Death, Other)
  Sender: FDA-Public Use
  Company Number: 2023A028576

PATIENT
  Age: 79 Year
  Sex: Male

DRUGS (1)
  1. CALQUENCE [Suspect]
     Active Substance: ACALABRUTINIB
     Indication: Chronic lymphocytic leukaemia
     Dosage: 11.0MG UNKNOWN
     Route: 048
     Dates: start: 20221015

REACTIONS (4)
  - Richter^s syndrome [Fatal]
  - Lymphadenitis [Unknown]
  - Upper respiratory tract infection [Unknown]
  - Influenza [Unknown]
